FAERS Safety Report 18555743 (Version 1)
Quarter: 2020Q4

REPORT INFORMATION
  Report Type: Spontaneous
  Country: US (occurrence: US)
  Receive Date: 20201127
  Receipt Date: 20201127
  Transmission Date: 20210114
  Serious: No
  Sender: FDA-Public Use
  Company Number: US-PFIZER INC-2020469346

PATIENT
  Age: 59 Year
  Sex: Female

DRUGS (1)
  1. IBRANCE [Suspect]
     Active Substance: PALBOCICLIB
     Dosage: 125 MG
     Dates: start: 20200212

REACTIONS (7)
  - Disturbance in attention [Unknown]
  - Immune system disorder [Unknown]
  - Skin exfoliation [Unknown]
  - Dry skin [Unknown]
  - Memory impairment [Unknown]
  - Arthropathy [Unknown]
  - Fatigue [Unknown]
